APPROVED DRUG PRODUCT: APREPITANT
Active Ingredient: APREPITANT
Strength: 80MG
Dosage Form/Route: CAPSULE;ORAL
Application: A211835 | Product #002 | TE Code: AB
Applicant: TORRENT PHARMA INC
Approved: Oct 21, 2020 | RLD: No | RS: No | Type: RX